FAERS Safety Report 7820932-1 (Version None)
Quarter: 2011Q4

REPORT INFORMATION
  Report Type: 
  Country: None (occurrence: None)
  Receive Date: 20111018
  Receipt Date: 20111013
  Transmission Date: 20120403
  Serious: Yes (Other)
  Sender: FDA-Public Use
  Company Number: FR-GLAXOSMITHKLINE-B0755032A

PATIENT
  Sex: Male

DRUGS (8)
  1. LIORESAL [Concomitant]
     Route: 065
  2. SCOPODERM [Concomitant]
     Route: 065
  3. MYOLASTAN [Concomitant]
     Route: 065
  4. PANTOPRAZOLE SODIUM [Concomitant]
     Route: 065
  5. LOVENOX [Concomitant]
     Route: 065
  6. ACETAMINOPHEN [Concomitant]
     Route: 065
  7. LORAZEPAM [Concomitant]
     Route: 065
  8. PAROXETINE HCL [Suspect]
     Indication: PRODUCT USED FOR UNKNOWN INDICATION
     Dosage: 10MG PER DAY
     Route: 065
     Dates: start: 20110914, end: 20110914

REACTIONS (4)
  - RESPIRATION ABNORMAL [None]
  - LARYNGOSPASM [None]
  - OBSTRUCTIVE AIRWAYS DISORDER [None]
  - LARYNGEAL OEDEMA [None]
